FAERS Safety Report 17167560 (Version 1)
Quarter: 2020Q3

REPORT INFORMATION
  Report Type: Spontaneous
  Country: NL (occurrence: FR)
  Receive Date: 20191218
  Receipt Date: 20191218
  Transmission Date: 20201104
  Serious: Yes (Hospitalization)
  Sender: FDA-Public Use
  Company Number: FR-BAYER-2019-225011

PATIENT
  Age: 0 Day
  Sex: Male
  Weight: 3.11 kg

DRUGS (5)
  1. TAGAMET [Suspect]
     Active Substance: CIMETIDINE
     Indication: ANAESTHETIC PREMEDICATION
     Route: 064
     Dates: start: 20190926, end: 20190926
  2. ULTRAVIST [Suspect]
     Active Substance: IOPROMIDE
     Indication: ANGIOGRAM PULMONARY
     Dosage: 100 ML
     Route: 064
     Dates: start: 20190922, end: 20190922
  3. PHENYLEPHRINE [Suspect]
     Active Substance: PHENYLEPHRINE HYDROCHLORIDE
     Indication: SURGERY
     Dosage: 150 MG
     Route: 064
     Dates: start: 20190926, end: 20190926
  4. EPHEDRINE. [Suspect]
     Active Substance: EPHEDRINE
     Indication: SURGERY
     Dosage: 12 MG
     Route: 064
     Dates: start: 20190926, end: 20190926
  5. CEFAZOLINE [CEFAZOLIN] [Suspect]
     Active Substance: CEFAZOLIN
     Indication: ANTIBIOTIC PROPHYLAXIS
     Route: 064
     Dates: start: 20190926, end: 20190926

REACTIONS (1)
  - Neonatal respiratory distress [Recovered/Resolved]

NARRATIVE: CASE EVENT DATE: 20190926
